FAERS Safety Report 14611259 (Version 2)
Quarter: 2018Q2

REPORT INFORMATION
  Report Type: Report from Study
  Country: None (occurrence: BR)
  Receive Date: 20180308
  Receipt Date: 20180423
  Transmission Date: 20180711
  Serious: Yes (Hospitalization, Other)
  Sender: FDA-Public Use
  Company Number: BR-ABBVIE-18K-020-2276807-00

PATIENT
  Age: 63 Year
  Sex: Female
  Weight: 52 kg

DRUGS (2)
  1. METHOTREXATE. [Suspect]
     Active Substance: METHOTREXATE
     Indication: PRODUCT USED FOR UNKNOWN INDICATION
     Route: 065
  2. HUMIRA [Suspect]
     Active Substance: ADALIMUMAB
     Indication: RHEUMATOID ARTHRITIS
     Route: 058
     Dates: start: 20120101, end: 20180209

REACTIONS (9)
  - Feeding disorder [Unknown]
  - Lung disorder [Unknown]
  - Pancreatic disorder [Unknown]
  - Diabetes mellitus [Not Recovered/Not Resolved]
  - Oropharyngeal pain [Not Recovered/Not Resolved]
  - Tuberculosis [Unknown]
  - Arthralgia [Unknown]
  - Wound [Unknown]
  - Pain [Unknown]

NARRATIVE: CASE EVENT DATE: 201710
